FAERS Safety Report 7571037-9 (Version None)
Quarter: 2011Q2

REPORT INFORMATION
  Report Type: 
  Country: None (occurrence: None)
  Receive Date: 20110624
  Receipt Date: 20110621
  Transmission Date: 20111010
  Serious: Yes (Hospitalization)
  Sender: FDA-Public Use
  Company Number: AU-TEVA-287132ISR

PATIENT
  Sex: Female

DRUGS (11)
  1. PANTOPRAZOLE SODIUM [Concomitant]
     Indication: GASTROOESOPHAGEAL REFLUX DISEASE
     Route: 048
  2. DEXAMETHASONE [Suspect]
     Indication: MULTIPLE MYELOMA
     Dates: start: 20110420
  3. ATORVASTATIN CALCIUM [Concomitant]
     Indication: HYPERCHOLESTEROLAEMIA
     Route: 048
  4. ACETAMINOPHEN [Concomitant]
     Indication: PYREXIA
     Dosage: 16 GRAM;
     Dates: start: 20110511
  5. TEMAZEPAM [Concomitant]
     Indication: INSOMNIA
     Route: 048
  6. LENALIDOMIDE [Suspect]
     Route: 048
     Dates: start: 20110420
  7. ZANDIP (LERCANIDIPINE HYDROCHLORIDE) [Concomitant]
     Indication: MOOD ALTERED
     Route: 048
  8. POTASSIUM CHLORIDE [Concomitant]
     Indication: RENAL IMPAIRMENT
     Dosage: 4800 MILLIGRAM;
  9. MAGNESIUM ASPARTATE [Concomitant]
     Indication: RENAL IMPAIRMENT
     Dosage: 4 TABLET;
  10. (MAXALON) METOCLOPRAMIDE HYDROCHLORIDE [Concomitant]
     Indication: PROPHYLAXIS OF NAUSEA AND VOMITING
     Route: 048
  11. ACETYLSALICYLIC ACID SRT [Concomitant]
     Indication: THROMBOSIS PROPHYLAXIS
     Route: 048

REACTIONS (2)
  - PULMONARY EMBOLISM [None]
  - PNEUMONIA [None]
